FAERS Safety Report 5845413-6 (Version None)
Quarter: 2008Q3

REPORT INFORMATION
  Report Type: 
  Country: None (occurrence: None)
  Receive Date: 20080814
  Receipt Date: 20080806
  Transmission Date: 20090109
  Serious: Yes (Death)
  Sender: FDA-Public Use
  Company Number: GB-JNJFOC-20080802538

PATIENT
  Age: 3 Year

DRUGS (2)
  1. PARACETAMOL [Suspect]
  2. PARACETAMOL [Suspect]
     Indication: DRUG USE FOR UNKNOWN INDICATION
     Dosage: MAXIMUM DOSE 140-281 MG/KG/DAY (DURATION, 3 DAYS)

REACTIONS (2)
  - LIVER INJURY [None]
  - OVERDOSE [None]
